FAERS Safety Report 8906423 (Version 1)
Quarter: 2012Q4

REPORT INFORMATION
  Report Type: Spontaneous
  Country: DK (occurrence: None)
  Receive Date: 20121107
  Receipt Date: 20121107
  Transmission Date: 20130627
  Serious: Yes (Other)
  Sender: FDA-Public Use
  Company Number: 2012MA012924

PATIENT
  Age: 2 Year
  Sex: Male

DRUGS (3)
  1. ZOLPIDEM TARTRATE [Suspect]
     Route: 064
  2. FLUOXETINE [Suspect]
     Route: 064
     Dates: end: 200903
  3. TOPAMAX [Suspect]
     Route: 064
     Dates: end: 200903

REACTIONS (3)
  - Hypoacusis [None]
  - Maternal drugs affecting foetus [None]
  - Hypotension [None]
